FAERS Safety Report 7208910-7 (Version None)
Quarter: 2011Q1

REPORT INFORMATION
  Report Type: 
  Country: None (occurrence: None)
  Receive Date: 20110104
  Receipt Date: 20101222
  Transmission Date: 20110831
  Serious: Yes (Other)
  Sender: FDA-Public Use
  Company Number: PHHY2010US86639

PATIENT
  Sex: Female
  Weight: 77.098 kg

DRUGS (1)
  1. EXJADE [Suspect]
     Indication: NEOPLASM
     Dosage: 1500 MG, QD
     Route: 048
     Dates: start: 20060601, end: 20100801

REACTIONS (2)
  - ARTHRITIS [None]
  - HIP ARTHROPLASTY [None]
